FAERS Safety Report 9745441 (Version 4)
Quarter: 2014Q1

REPORT INFORMATION
  Report Type: Spontaneous
  Country: US (occurrence: US)
  Receive Date: 20131211
  Receipt Date: 20140108
  Transmission Date: 20141002
  Serious: Yes (Death)
  Sender: FDA-Public Use
  Company Number: US-PFIZER INC-2013224150

PATIENT
  Age: 46 Year
  Sex: Male

DRUGS (1)
  1. RAPAMUNE [Suspect]
     Indication: RENAL TRANSPLANT
     Dosage: 0.5 MG, UNK
     Dates: start: 20130626, end: 20131029

REACTIONS (3)
  - Malignant neoplasm progression [Fatal]
  - Pneumonia [Fatal]
  - Respiratory failure [Fatal]
